FAERS Safety Report 7804397-1 (Version None)
Quarter: 2011Q4

REPORT INFORMATION
  Report Type: 
  Country: None (occurrence: None)
  Receive Date: 20111010
  Receipt Date: 20110927
  Transmission Date: 20120403
  Serious: Yes (Other)
  Sender: FDA-Public Use
  Company Number: US-ELI_LILLY_AND_COMPANY-US201109008453

PATIENT
  Sex: Female

DRUGS (10)
  1. FORTEO [Suspect]
     Dosage: 20 UG, QD
     Dates: start: 20100801
  2. ULTRASE MT20 [Concomitant]
  3. NITROFUR-C [Concomitant]
  4. MELOXCAM [Concomitant]
  5. CITALOPRAM [Concomitant]
  6. ATENOLOL [Concomitant]
  7. FAMOTIDINE [Concomitant]
  8. LUNESTA [Concomitant]
     Dosage: 3 MG, UNK
  9. PLAVIX [Concomitant]
  10. SYNTHROID [Concomitant]

REACTIONS (7)
  - LOSS OF CONSCIOUSNESS [None]
  - DIZZINESS [None]
  - PRODUCT SUBSTITUTION ISSUE [None]
  - INJECTION SITE HAEMATOMA [None]
  - FALL [None]
  - RIB FRACTURE [None]
  - PAIN [None]
